FAERS Safety Report 9494522 (Version 3)
Quarter: 2014Q1

REPORT INFORMATION
  Report Type: Spontaneous
  Country: US (occurrence: US)
  Receive Date: 20130903
  Receipt Date: 20140327
  Transmission Date: 20141002
  Serious: Yes (Hospitalization, Other)
  Sender: FDA-Public Use
  Company Number: US-PFIZER INC-2013252317

PATIENT
  Age: 76 Year
  Sex: Female
  Weight: 92.06 kg

DRUGS (15)
  1. LYRICA [Suspect]
     Indication: FIBROMYALGIA
     Dosage: 150 MG, 3X/DAY
     Route: 048
  2. LYRICA [Suspect]
     Indication: DIABETIC NEUROPATHY
     Dosage: 150 MG, 3X/DAY
     Route: 048
  3. LYRICA [Suspect]
     Indication: DIABETIC NEUROPATHY
     Dosage: 150 MG, 2X/DAY
     Route: 048
     Dates: end: 2014
  4. HUMULIN N [Concomitant]
     Dosage: 31 UNITS IN THE MORNING AND 25 UNITS IN THE EVENING
  5. ATENOLOL [Concomitant]
     Dosage: 50 MG, 1X/DAY
  6. LEVOTHYROXINE [Concomitant]
     Indication: THYROID DISORDER
     Dosage: 50 UG, 1X/DAY
  7. LISINOPRIL [Concomitant]
     Indication: HYPERTENSION
     Dosage: 40 MG, 1X/DAY
  8. BABY ASPIRIN [Concomitant]
     Dosage: UNK
  9. OCUVITE [Concomitant]
     Dosage: UNK
  10. OCUVITE [Concomitant]
     Dosage: UNK
  11. TIZANIDINE [Concomitant]
     Dosage: 4 MG, 3X/DAY
  12. METANX [Concomitant]
     Dosage: UNK
  13. INSULIN [Concomitant]
     Indication: TYPE 2 DIABETES MELLITUS
     Dosage: UNK
  14. FUROSEMIDE [Concomitant]
     Dosage: 40 MG, AS NEEDED
  15. ATENOLOL/CHLORTHALIDONE [Concomitant]
     Dosage: 40/25 MG/MG,1X/DAY

REACTIONS (12)
  - Thrombosis [Recovered/Resolved]
  - Thrombosis [Unknown]
  - Thrombosis [Unknown]
  - Muscle spasms [Unknown]
  - Groin pain [Not Recovered/Not Resolved]
  - Gout [Unknown]
  - Fibromyalgia [Unknown]
  - Myalgia [Unknown]
  - Pain [Unknown]
  - Pain in extremity [Unknown]
  - Insomnia [Unknown]
  - Paranoia [Unknown]
